FAERS Safety Report 7802845-4 (Version None)
Quarter: 2011Q4

REPORT INFORMATION
  Report Type: 
  Country: None (occurrence: None)
  Receive Date: 20111007
  Receipt Date: 20111004
  Transmission Date: 20120403
  Serious: Yes (Death, Hospitalization, Other)
  Sender: FDA-Public Use
  Company Number: US-AMGEN-USASP2010013520

PATIENT
  Age: 77 Year
  Sex: Female
  Weight: 83.5 kg

DRUGS (12)
  1. METRONIDAZOLE [Concomitant]
     Dosage: UNK UNK, BID
  2. FUROSEMIDE [Concomitant]
     Dosage: 80 MG, BID
  3. LIOTRIX [Concomitant]
     Dosage: UNK UNK, UNK
  4. ASPIRIN [Concomitant]
     Dosage: UNK UNK, UNK
  5. DILTIAZEM HCL [Concomitant]
     Dosage: 60 MG, TID
  6. NPLATE [Suspect]
     Indication: IDIOPATHIC THROMBOCYTOPENIC PURPURA
     Dosage: UNK, QWK
     Route: 058
     Dates: start: 20091223, end: 20091230
  7. SIMVASTATIN [Concomitant]
     Dosage: 10 MG, QD
  8. THYROLAR [Concomitant]
  9. NPLATE [Suspect]
     Dosage: UNK, QWK
     Route: 058
     Dates: start: 20091223, end: 20091230
  10. DIGOXIN [Concomitant]
     Dosage: UNK UNK, UNK
  11. WARFARIN SODIUM [Concomitant]
     Dosage: UNK UNK, QD
  12. VALSARTAN [Concomitant]
     Dosage: 160 MG, QD

REACTIONS (4)
  - CEREBROVASCULAR ACCIDENT [None]
  - HEPATIC ENCEPHALOPATHY [None]
  - HEPATIC CIRRHOSIS [None]
  - DEATH [None]
